FAERS Safety Report 9225189 (Version 4)
Quarter: 2013Q3

REPORT INFORMATION
  Report Type: Spontaneous
  Country: DE (occurrence: None)
  Receive Date: 20130409
  Receipt Date: 20130725
  Transmission Date: 20140515
  Serious: Yes (Hospitalization)
  Sender: FDA-Public Use
  Company Number: 2013MPI00191

PATIENT
  Sex: 0
  Weight: 88 kg

DRUGS (9)
  1. BRENTUXIMAB VEDOTIN (BRENTUXIMAB VEDOTIN) INJECTION [Suspect]
     Indication: HODGKIN^S DISEASE
     Dosage: 157 MG, QCYCLE
     Dates: end: 20130314
  2. CYCLOPHOSPHAMIDE (CYCLOPHOSPHAMIDE) [Suspect]
     Indication: HODGKIN^S DISEASE
     Dosage: 1250 MG/M2, QCYCLE
     Dates: end: 20130315
  3. DOXORUBICIN (DOXORUBICIN) (DOXORUBICIN) [Suspect]
     Indication: HODGKIN^S DISEASE
     Dosage: 35 MG/M2, QCYCLE
     Dates: end: 20130315
  4. ETOPOSIDE (ETOPOSIDE) [Suspect]
     Indication: HODGKIN^S DISEASE
     Dosage: 200 MG/M2, QCYCLE
     Dates: end: 20130317
  5. PROCARBAZINE (PROCARBAZINE) [Suspect]
     Indication: HODGKIN^S DISEASE
     Dosage: 100 MG/M2, QCYCLE
     Dates: end: 20130321
  6. PREDNISONE (PREDNISONE) [Suspect]
     Indication: HODGKIN^S DISEASE
     Dosage: UNK, QCYCLE
  7. NEULASTA (PEGFILGRASTIM) [Concomitant]
  8. CIPROFLOXACIN (CIPROFLOXACIN HYDROCHLORIDE) [Concomitant]
  9. COTRIM FORTE EU RHO (SULFAMETHOXAZOLE, TRIMETHOPRIM) [Concomitant]

REACTIONS (5)
  - Leukopenia [None]
  - Epistaxis [None]
  - Thrombocytopenia [None]
  - Pyrexia [None]
  - Infection [None]
